FAERS Safety Report 5373902-X (Version None)
Quarter: 2007Q2

REPORT INFORMATION
  Report Type: 
  Country: None (occurrence: None)
  Receive Date: 20070628
  Receipt Date: 20070626
  Transmission Date: 20071010
  Serious: Yes (Other)
  Sender: FDA-Public Use
  Company Number: US-GENENTECH-230037

PATIENT
  Age: 50 Year
  Sex: Female

DRUGS (3)
  1. AVASTIN [Suspect]
     Indication: BREAST CANCER METASTATIC
     Dosage: UNK, Q2W
     Dates: start: 20051001
  2. TRASTUZUMAB [Suspect]
     Indication: BREAST CANCER METASTATIC
     Dosage: UNK, Q2W
     Dates: start: 20051001
  3. TAXOTERE [Suspect]
     Indication: BREAST CANCER METASTATIC
     Dosage: UNK, UNK
     Dates: start: 20051001, end: 20060401

REACTIONS (6)
  - ALOPECIA [None]
  - DEAFNESS [None]
  - DYSPHONIA [None]
  - LACRIMATION INCREASED [None]
  - ONYCHOMADESIS [None]
  - RHINORRHOEA [None]
